FAERS Safety Report 13552262 (Version 3)
Quarter: 2017Q3

REPORT INFORMATION
  Report Type: Report from Study
  Country: CO (occurrence: CO)
  Receive Date: 20170517
  Receipt Date: 20170818
  Transmission Date: 20171127
  Serious: Yes (Death, Hospitalization, Other)
  Sender: FDA-Public Use
  Company Number: CO-AMGEN-COLSL2017071862

PATIENT
  Age: 65 Year
  Sex: Male

DRUGS (1)
  1. XGEVA [Suspect]
     Active Substance: DENOSUMAB
     Indication: BONE DISORDER
     Dosage: 120 MG, QMO
     Route: 058
     Dates: start: 20161103, end: 20170428

REACTIONS (10)
  - Urinary tract infection [Not Recovered/Not Resolved]
  - Catheter removal [Unknown]
  - Hypocalcaemia [Recovered/Resolved]
  - Thrombocytopenia [Recovered/Resolved]
  - Haemodialysis [Unknown]
  - Fall [Unknown]
  - Transfusion [Unknown]
  - Death [Fatal]
  - Haemoglobin decreased [Unknown]
  - Somnolence [Unknown]

NARRATIVE: CASE EVENT DATE: 20170601
